FAERS Safety Report 12244978 (Version 4)
Quarter: 2016Q2

REPORT INFORMATION
  Report Type: Spontaneous
  Country: RU (occurrence: RU)
  Receive Date: 20160407
  Receipt Date: 20160415
  Transmission Date: 20160815
  Serious: Yes (Other)
  Sender: FDA-Public Use
  Company Number: PHHY2016RU044178

PATIENT
  Sex: Female

DRUGS (5)
  1. CERTICAN [Suspect]
     Active Substance: EVEROLIMUS
     Indication: RENAL TRANSPLANT
     Dosage: 1.5 MG, QD
     Route: 048
     Dates: start: 201603, end: 201603
  2. MYCOPHENOLATE MOFETIL. [Suspect]
     Active Substance: MYCOPHENOLATE MOFETIL
     Indication: RENAL TRANSPLANT
     Route: 065
  3. SANDIMMUN NEORAL [Suspect]
     Active Substance: CYCLOSPORINE
     Indication: RENAL TRANSPLANT
     Route: 065
  4. MYFORTIC [Suspect]
     Active Substance: MYCOPHENOLATE SODIUM
     Indication: PRODUCT USED FOR UNKNOWN INDICATION
     Dosage: 720 MG, QD
     Route: 065
  5. METIPRED [Suspect]
     Active Substance: METHYLPREDNISOLONE
     Indication: PRODUCT USED FOR UNKNOWN INDICATION
     Dosage: 8 MG, UNK
     Route: 065

REACTIONS (9)
  - Oedema peripheral [Unknown]
  - Noninfectious peritonitis [Recovered/Resolved]
  - Oedema [Recovered/Resolved]
  - Haemoglobin decreased [Unknown]
  - Vomiting [Unknown]
  - Nephrosclerosis [Unknown]
  - Blood pressure increased [Unknown]
  - Ascites [Recovered/Resolved]
  - Complications of transplanted kidney [Unknown]

NARRATIVE: CASE EVENT DATE: 201603
